FAERS Safety Report 4774822-1 (Version None)
Quarter: 2005Q3

REPORT INFORMATION
  Report Type: 
  Country: None (occurrence: None)
  Receive Date: 20050919
  Receipt Date: 20050907
  Transmission Date: 20060218
  Serious: Yes (Death)
  Sender: FDA-Public Use
  Company Number: US010944

PATIENT
  Age: 20 Year
  Sex: Female

DRUGS (2)
  1. ACTIQ [Suspect]
     Dosage: 4800 UG ONCE BUCCAL
     Route: 002
  2. METHADOSE [Suspect]
     Dates: end: 20030101

REACTIONS (2)
  - OVERDOSE [None]
  - POLYSUBSTANCE ABUSE [None]
